FAERS Safety Report 19477577 (Version 2)
Quarter: 2021Q3

REPORT INFORMATION
  Report Type: Report from Study
  Country: None (occurrence: US)
  Receive Date: 20210630
  Receipt Date: 20210729
  Transmission Date: 20211014
  Serious: Yes (Hospitalization, Other)
  Sender: FDA-Public Use
  Company Number: US-ABBVIE-21K-163-3967879-00

PATIENT
  Age: 69 Year
  Sex: Female

DRUGS (3)
  1. LYRICA [Suspect]
     Active Substance: PREGABALIN
     Indication: FIBROMYALGIA
     Route: 065
  2. HUMIRA [Suspect]
     Active Substance: ADALIMUMAB
     Indication: RHEUMATOID ARTHRITIS
     Dosage: CITRATE FREE
     Route: 058
  3. SULFASALAZINE. [Concomitant]
     Active Substance: SULFASALAZINE
     Indication: PRODUCT USED FOR UNKNOWN INDICATION
     Route: 065

REACTIONS (9)
  - Peripheral swelling [Unknown]
  - Large intestinal ulcer haemorrhage [Recovered/Resolved]
  - Hip arthroplasty [Recovered/Resolved]
  - Joint swelling [Unknown]
  - Knee arthroplasty [Recovered/Resolved]
  - Fibromyalgia [Not Recovered/Not Resolved]
  - Spinal operation [Recovered/Resolved]
  - Post procedural complication [Unknown]
  - Polyp [Unknown]

NARRATIVE: CASE EVENT DATE: 20210625
